FAERS Safety Report 8552060-4 (Version None)
Quarter: 2012Q3

REPORT INFORMATION
  Report Type: 
  Country: None (occurrence: None)
  Receive Date: 20120731
  Receipt Date: 20120717
  Transmission Date: 20120928
  Serious: Yes (Other)
  Sender: FDA-Public Use
  Company Number: FR-RANBAXY-2012RR-56990

PATIENT
  Age: 74 Year
  Sex: Female
  Weight: 60 kg

DRUGS (5)
  1. LIDOCAINE AND EPINEPHRINE [Interacting]
     Dosage: 100 MG, UNK
     Route: 042
  2. FLECAINIDE ACETATE [Interacting]
     Indication: TACHYCARDIA
  3. FLECAINIDE ACETATE [Suspect]
     Indication: ATRIAL FIBRILLATION
     Route: 065
  4. LIDOCAINE AND EPINEPHRINE [Interacting]
     Indication: ANAESTHESIA
     Dosage: 300 MG, UNK
     Route: 042
  5. FLECAINIDE ACETATE [Interacting]
     Indication: CARDIOMYOPATHY

REACTIONS (3)
  - NEUROTOXICITY [None]
  - MYOCLONUS [None]
  - DRUG INTERACTION [None]
